FAERS Safety Report 19621044 (Version 1)
Quarter: 2021Q3

REPORT INFORMATION
  Report Type: Spontaneous
  Country: BB (occurrence: BB)
  Receive Date: 20210727
  Receipt Date: 20210727
  Transmission Date: 20211014
  Serious: No
  Sender: FDA-Public Use
  Company Number: None

PATIENT
  Age: 41 Year
  Sex: Female
  Weight: 74.84 kg

DRUGS (3)
  1. B COMPLETE WITH IRON [Concomitant]
  2. MIRENA [Suspect]
     Active Substance: LEVONORGESTREL
     Indication: UTERINE LEIOMYOMA
     Dosage: ?          QUANTITY:1 DF DOSAGE FORM;?
     Route: 067
     Dates: start: 20210513, end: 20210726
  3. MIRENA [Suspect]
     Active Substance: LEVONORGESTREL
     Indication: HAEMORRHAGE
     Dosage: ?          QUANTITY:1 DF DOSAGE FORM;?
     Route: 067
     Dates: start: 20210513, end: 20210726

REACTIONS (10)
  - Muscle spasms [None]
  - Headache [None]
  - Device dislocation [None]
  - Pain [None]
  - Haemorrhage [None]
  - Abdominal distension [None]
  - Nausea [None]
  - Weight increased [None]
  - Nightmare [None]
  - Alopecia [None]

NARRATIVE: CASE EVENT DATE: 20210617
